FAERS Safety Report 14212654 (Version 1)
Quarter: 2017Q4

REPORT INFORMATION
  Report Type: Spontaneous
  Country: DK (occurrence: DK)
  Receive Date: 20171121
  Receipt Date: 20171121
  Transmission Date: 20180321
  Serious: Yes (Other)
  Sender: FDA-Public Use
  Company Number: DK-009507513-1710DNK009919

PATIENT
  Age: 70 Year
  Sex: Male

DRUGS (2)
  1. SIMVASTATIN. [Suspect]
     Active Substance: SIMVASTATIN
     Dosage: INCREASED
     Route: 048
     Dates: start: 2013
  2. SIMVASTATIN. [Suspect]
     Active Substance: SIMVASTATIN
     Indication: ARTERIOSCLEROSIS
     Dosage: 10 MG, UNK
     Route: 048
     Dates: end: 2013

REACTIONS (4)
  - Drug intolerance [Unknown]
  - Cardiac operation [Unknown]
  - Arthralgia [Unknown]
  - Insomnia [Unknown]

NARRATIVE: CASE EVENT DATE: 2013
